FAERS Safety Report 6335882-X (Version None)
Quarter: 2009Q3

REPORT INFORMATION
  Report Type: 
  Country: None (occurrence: None)
  Receive Date: 20090828
  Receipt Date: 20090814
  Transmission Date: 20100115
  Serious: Yes (Hospitalization)
  Sender: FDA-Public Use
  Company Number: 2009SP001122

PATIENT
  Age: 6 Year
  Sex: Male

DRUGS (8)
  1. ALVESCO [Suspect]
     Indication: ASTHMA
     Dosage: QD; INHALATION
     Route: 055
     Dates: start: 20090417, end: 20090419
  2. ALVESCO [Suspect]
     Indication: ASTHMA
     Dosage: QD; INHALATION
     Route: 055
     Dates: start: 20090422
  3. CLARITHROMYCIN [Concomitant]
  4. MIYA-BM [Concomitant]
  5. MUCOSOLVAN      /00546002/ [Concomitant]
  6. TELGIN-G [Concomitant]
  7. MUCODYNE [Concomitant]
  8. MEPTIN [Concomitant]

REACTIONS (8)
  - ABDOMINAL PAIN [None]
  - ASTHMA [None]
  - BRONCHITIS [None]
  - CONDITION AGGRAVATED [None]
  - COUGH [None]
  - PNEUMONIA MYCOPLASMAL [None]
  - VOMITING [None]
  - WHITE BLOOD CELL COUNT INCREASED [None]
